FAERS Safety Report 16411415 (Version 5)
Quarter: 2020Q1

REPORT INFORMATION
  Report Type: Report from Study
  Country: US (occurrence: US)
  Receive Date: 20190610
  Receipt Date: 20200227
  Transmission Date: 20200409
  Serious: Yes (Hospitalization)
  Sender: FDA-Public Use
  Company Number: US-EISAI MEDICAL RESEARCH-EC-2018-047584

PATIENT
  Age: 76 Year
  Sex: Male
  Weight: 104.32 kg

DRUGS (23)
  1. LENVIMA [Suspect]
     Active Substance: LENVATINIB
     Indication: THYROID CANCER
     Route: 048
     Dates: start: 20181023
  2. LENVIMA [Suspect]
     Active Substance: LENVATINIB
     Route: 048
     Dates: start: 2019, end: 2019
  3. POTASSIUM [Concomitant]
     Active Substance: POTASSIUM
  4. IMODIUM [Concomitant]
     Active Substance: LOPERAMIDE HYDROCHLORIDE
  5. COLCHICINE. [Concomitant]
     Active Substance: COLCHICINE
  6. BIOTIN-D [Concomitant]
  7. VITAMIN E + A OIL [Concomitant]
  8. ASPIRIN. [Concomitant]
     Active Substance: ASPIRIN
  9. B COMPLEX TABLET [Concomitant]
  10. DOXYCYCLINE. [Concomitant]
     Active Substance: DOXYCYCLINE
  11. LENVIMA [Suspect]
     Active Substance: LENVATINIB
     Route: 048
     Dates: start: 2019, end: 20191223
  12. PENTOXIFYLLINE. [Concomitant]
     Active Substance: PENTOXIFYLLINE
  13. PLAVIX [Concomitant]
     Active Substance: CLOPIDOGREL BISULFATE
  14. PILOCARPINE 1% [Concomitant]
     Active Substance: PILOCARPINE
  15. LEVOTHYROXINE. [Concomitant]
     Active Substance: LEVOTHYROXINE
  16. SIMVASTATIN. [Concomitant]
     Active Substance: SIMVASTATIN
  17. ALLOPURINOL. [Concomitant]
     Active Substance: ALLOPURINOL
  18. CEPHALEXIN. [Concomitant]
     Active Substance: CEPHALEXIN
  19. AZITHROMYCIN ANHYDROUS. [Concomitant]
     Active Substance: AZITHROMYCIN ANHYDROUS
  20. SPIRONOLACTONE. [Concomitant]
     Active Substance: SPIRONOLACTONE
  21. FUROSEMIDE. [Concomitant]
     Active Substance: FUROSEMIDE
  22. CHONDROITIN SULFATE [Concomitant]
     Active Substance: CHONDROITIN SULFATE (BOVINE)
  23. VITAMIN C [Concomitant]
     Active Substance: ASCORBIC ACID

REACTIONS (14)
  - Fatigue [Not Recovered/Not Resolved]
  - Dysphonia [Not Recovered/Not Resolved]
  - Abdominal pain upper [Unknown]
  - Headache [Not Recovered/Not Resolved]
  - Diarrhoea [Not Recovered/Not Resolved]
  - Malignant neoplasm progression [Unknown]
  - Decreased appetite [Not Recovered/Not Resolved]
  - Blister [Unknown]
  - Ulcer [Unknown]
  - Clostridium difficile infection [Unknown]
  - Dehydration [Unknown]
  - Arthralgia [Not Recovered/Not Resolved]
  - Flatulence [Not Recovered/Not Resolved]
  - Pneumonia [Recovering/Resolving]

NARRATIVE: CASE EVENT DATE: 2018
